FAERS Safety Report 4554092-X (Version None)
Quarter: 2005Q1

REPORT INFORMATION
  Report Type: 
  Country: None (occurrence: None)
  Receive Date: 20050113
  Receipt Date: 20050113
  Transmission Date: 20050727
  Serious: No
  Sender: FDA-Public Use
  Company Number: None

PATIENT
  Age: 88 Year
  Sex: Female
  Weight: 45 kg

DRUGS (2)
  1. CAPTOPRIL [Suspect]
     Indication: HYPERTENSION
     Dosage: 25 MG   EVERY 8 HOURS   OTHER
     Route: 050
     Dates: start: 20041126, end: 20041207
  2. POTASSIUM CHLORIDE [Concomitant]

REACTIONS (1)
  - BLOOD POTASSIUM INCREASED [None]
